FAERS Safety Report 16967681 (Version 1)
Quarter: 2019Q4

REPORT INFORMATION
  Report Type: Spontaneous
  Country: FR (occurrence: FR)
  Receive Date: 20191028
  Receipt Date: 20191028
  Transmission Date: 20200122
  Serious: Yes (Hospitalization)
  Sender: FDA-Public Use
  Company Number: FR-MYLANLABS-2019M1101462

PATIENT
  Age: 69 Year
  Sex: Female
  Weight: 101 kg

DRUGS (11)
  1. PREGABALINE [Suspect]
     Active Substance: PREGABALIN
     Indication: NEURALGIA
     Dosage: 1-0-1
     Route: 048
     Dates: start: 20190423, end: 20190503
  2. OXYCONTIN [Concomitant]
     Active Substance: OXYCODONE HYDROCHLORIDE
     Indication: ANALGESIC INTERVENTION SUPPORTIVE THERAPY
     Dosage: 1-0-1
     Route: 048
     Dates: start: 20190410
  3. DOLIPRANE [Concomitant]
     Active Substance: ACETAMINOPHEN
     Indication: ANALGESIC INTERVENTION SUPPORTIVE THERAPY
     Dosage: 2-2-2-2
     Route: 048
  4. LOVENOX [Concomitant]
     Active Substance: ENOXAPARIN SODIUM
     Indication: EMBOLIC STROKE
     Dosage: 0-0-1
     Route: 058
     Dates: start: 20190410
  5. PREDNISONE. [Concomitant]
     Active Substance: PREDNISONE
     Indication: SPINAL CORD INFECTION
     Dosage: 4-2-0
     Route: 048
     Dates: start: 20190413
  6. LETROZOLE MYLAN 2,5 MG, COMPRIM? PELLICUL? [Suspect]
     Active Substance: LETROZOLE
     Indication: BREAST CANCER FEMALE
     Dosage: 2.5 MILLIGRAM, QD
     Route: 048
     Dates: start: 20190424, end: 20190506
  7. LANSOPRAZOLE ARROW [Suspect]
     Active Substance: LANSOPRAZOLE
     Indication: PROPHYLAXIS AGAINST GASTROINTESTINAL ULCER
     Dosage: 0-0-1
     Route: 048
     Dates: start: 20190422, end: 20190503
  8. OXYCONTIN [Concomitant]
     Active Substance: OXYCODONE HYDROCHLORIDE
     Indication: ANALGESIC INTERVENTION SUPPORTIVE THERAPY
     Dosage: 1-0-1
     Route: 048
     Dates: start: 20190410
  9. PRIMPERAN [Concomitant]
     Active Substance: METOCLOPRAMIDE HYDROCHLORIDE
     Indication: ANTIEMETIC SUPPORTIVE CARE
     Dosage: SB (MAX 3/JOUR)
     Route: 048
     Dates: start: 20190410
  10. MOVICOL [Concomitant]
     Active Substance: POLYETHYLENE GLYCOL 3350\POTASSIUM CHLORIDE\SODIUM BICARBONATE\SODIUM CHLORIDE
     Indication: CONSTIPATION
     Dosage: 2-0-0
     Route: 048
  11. OXYNORMORO [Concomitant]
     Active Substance: OXYCODONE HYDROCHLORIDE
     Indication: ANALGESIC INTERVENTION SUPPORTIVE THERAPY
     Dosage: SB
     Route: 048
     Dates: start: 20190410

REACTIONS (2)
  - Thrombocytopenia [Recovered/Resolved]
  - Agranulocytosis [Recovered/Resolved]

NARRATIVE: CASE EVENT DATE: 20190503
